FAERS Safety Report 5520190-7 (Version None)
Quarter: 2007Q4

REPORT INFORMATION
  Report Type: 
  Country: None (occurrence: None)
  Receive Date: 20071116
  Receipt Date: 20071107
  Transmission Date: 20080405
  Serious: Yes (Hospitalization)
  Sender: FDA-Public Use
  Company Number: US-ABBOTT-07P-163-0424093-00

PATIENT
  Sex: Female

DRUGS (1)
  1. DEPAKOTE ER [Suspect]
     Indication: BIPOLAR DISORDER
     Dates: start: 19970101

REACTIONS (7)
  - ALCOHOL ABUSE [None]
  - BLISTER [None]
  - DIARRHOEA [None]
  - DRUG ABUSE [None]
  - ORAL MUCOSAL BLISTERING [None]
  - SWOLLEN TONGUE [None]
  - VOMITING [None]
